FAERS Safety Report 7079713-1 (Version None)
Quarter: 2010Q4

REPORT INFORMATION
  Report Type: 
  Country: None (occurrence: None)
  Receive Date: 20101102
  Receipt Date: 20101027
  Transmission Date: 20110411
  Serious: Yes (Death, Hospitalization)
  Sender: FDA-Public Use
  Company Number: PHHY2010US70148

PATIENT
  Sex: Female
  Weight: 67 kg

DRUGS (1)
  1. EXJADE [Suspect]
     Indication: NEOPLASM
     Dosage: 250 MG DAILY
     Route: 048
     Dates: start: 20071002

REACTIONS (24)
  - BLOOD CREATINE PHOSPHOKINASE INCREASED [None]
  - BLOOD CREATININE INCREASED [None]
  - BLOOD UREA INCREASED [None]
  - CARDIAC ARREST [None]
  - CEREBROVASCULAR ACCIDENT [None]
  - COAGULOPATHY [None]
  - DROOLING [None]
  - ECCHYMOSIS [None]
  - FACIAL PARESIS [None]
  - HYPOTENSION [None]
  - HYPOTONIA [None]
  - INTERNATIONAL NORMALISED RATIO INCREASED [None]
  - LOSS OF CONSCIOUSNESS [None]
  - MOVEMENT DISORDER [None]
  - NYSTAGMUS [None]
  - OCCULT BLOOD POSITIVE [None]
  - ORAL DISORDER [None]
  - PYREXIA [None]
  - RENAL FAILURE [None]
  - RHABDOMYOLYSIS [None]
  - TROPONIN INCREASED [None]
  - UNRESPONSIVE TO STIMULI [None]
  - URINE ANALYSIS ABNORMAL [None]
  - WHITE BLOOD CELL COUNT INCREASED [None]
